FAERS Safety Report 20392715 (Version 1)
Quarter: 2022Q1

REPORT INFORMATION
  Report Type: Spontaneous
  Country: TW (occurrence: TW)
  Receive Date: 20220128
  Receipt Date: 20220128
  Transmission Date: 20220423
  Serious: Yes (Life-Threatening, Hospitalization)
  Sender: FDA-Public Use
  Company Number: TW-NOVARTISPH-NVSC2022TW018474

PATIENT
  Age: 54 Year
  Sex: Male

DRUGS (9)
  1. AZITHROMYCIN [Suspect]
     Active Substance: AZITHROMYCIN
     Indication: Atypical mycobacterial lower respiratory tract infection
     Dosage: 250 MG, QD
     Route: 048
  2. LINEZOLID [Suspect]
     Active Substance: LINEZOLID
     Indication: Atypical mycobacterial lower respiratory tract infection
     Dosage: 600 MG, BID
     Route: 048
  3. LINEZOLID [Suspect]
     Active Substance: LINEZOLID
     Dosage: 600 MG, QD (REDUCED)
     Route: 065
  4. PREDNISOLONE [Concomitant]
     Active Substance: PREDNISOLONE
     Indication: Renal transplant
     Dosage: 5 MG, QD (REDUCED DOSE)
     Route: 065
  5. PREDNISOLONE [Concomitant]
     Active Substance: PREDNISOLONE
     Indication: Immunosuppressant drug therapy
  6. MYCOPHENOLIC ACID [Concomitant]
     Active Substance: MYCOPHENOLIC ACID
     Indication: Renal transplant
     Dosage: 180 MG, QD (REDUCED DOSE)
     Route: 065
  7. MYCOPHENOLIC ACID [Concomitant]
     Active Substance: MYCOPHENOLIC ACID
     Indication: Immunosuppressant drug therapy
  8. SIROLIMUS [Concomitant]
     Active Substance: SIROLIMUS
     Indication: Renal transplant
     Dosage: 0.25 MG, QD (REDUCED DOSE)
     Route: 065
  9. SIROLIMUS [Concomitant]
     Active Substance: SIROLIMUS
     Indication: Immunosuppressant drug therapy

REACTIONS (2)
  - Lactic acidosis [Recovered/Resolved]
  - Drug interaction [Unknown]
